FAERS Safety Report 4532232-6 (Version None)
Quarter: 2004Q4

REPORT INFORMATION
  Report Type: 
  Country: None (occurrence: None)
  Receive Date: 20041217
  Receipt Date: 20041105
  Transmission Date: 20050328
  Serious: Yes (Hospitalization)
  Sender: FDA-Public Use
  Company Number: 2004SE06211

PATIENT
  Age: 42 Year
  Sex: Female

DRUGS (3)
  1. NEXIUM [Suspect]
     Indication: GASTRIC ULCER
     Dates: end: 20040820
  2. CELEBRA [Suspect]
     Dates: end: 20040820
  3. ANTESIN [Concomitant]

REACTIONS (2)
  - CHOLESTASIS [None]
  - HEPATITIS ACUTE [None]
